FAERS Safety Report 19818671 (Version 2)
Quarter: 2022Q1

REPORT INFORMATION
  Report Type: Spontaneous
  Country: US (occurrence: US)
  Receive Date: 20210912
  Receipt Date: 20220105
  Transmission Date: 20220423
  Serious: No
  Sender: FDA-Public Use
  Company Number: US-JNJFOC-20210903232

PATIENT
  Age: 30 Year
  Sex: Female

DRUGS (2)
  1. STELARA [Suspect]
     Active Substance: USTEKINUMAB
     Indication: Crohn^s disease
     Route: 041
     Dates: start: 20210109
  2. NORETHINDRONE [Concomitant]
     Active Substance: NORETHINDRONE
     Indication: Contraception
     Route: 065

REACTIONS (6)
  - Heart rate increased [Recovered/Resolved]
  - Rash [Recovered/Resolved]
  - Chest discomfort [Recovered/Resolved]
  - Chest pain [Recovered/Resolved]
  - Dyspnoea [Recovered/Resolved]
  - Palpitations [Recovered/Resolved]

NARRATIVE: CASE EVENT DATE: 20210109
